FAERS Safety Report 9394808 (Version 4)
Quarter: 2013Q4

REPORT INFORMATION
  Report Type: Spontaneous
  Country: US (occurrence: US)
  Receive Date: 20130711
  Receipt Date: 20131108
  Transmission Date: 20140711
  Serious: Yes (Other)
  Sender: FDA-Public Use
  Company Number: US-JNJFOC-20130618590

PATIENT
  Sex: Male
  Weight: 85.28 kg

DRUGS (8)
  1. DURAGESIC [Suspect]
     Indication: DIABETIC NEUROPATHY
     Route: 062
  2. DURAGESIC [Suspect]
     Indication: DIABETIC NEUROPATHY
     Route: 062
     Dates: start: 200906
  3. GENERIC FENTANYL TRANSDERMAL SYSTEM [Suspect]
     Indication: PRODUCT USED FOR UNKNOWN INDICATION
     Route: 062
  4. PRAVASTATIN [Concomitant]
     Indication: PRODUCT USED FOR UNKNOWN INDICATION
     Route: 065
  5. LYRICA [Concomitant]
     Indication: DIABETIC NEUROPATHY
     Route: 065
  6. PLAVIX [Concomitant]
     Indication: CARDIAC DISORDER
     Route: 065
  7. METOPROLOL [Concomitant]
     Indication: CARDIAC DISORDER
     Route: 065
  8. INSULIN [Concomitant]
     Indication: DIABETES MELLITUS
     Route: 065

REACTIONS (6)
  - Deafness [Not Recovered/Not Resolved]
  - Drug dose omission [Unknown]
  - Inappropriate schedule of drug administration [Not Recovered/Not Resolved]
  - Product quality issue [Unknown]
  - Application site dryness [Not Recovered/Not Resolved]
  - Drug ineffective [Unknown]
